FAERS Safety Report 19680665 (Version 1)
Quarter: 2021Q3

REPORT INFORMATION
  Report Type: Spontaneous
  Country: US (occurrence: US)
  Receive Date: 20210810
  Receipt Date: 20210810
  Transmission Date: 20211014
  Serious: Yes (Hospitalization)
  Sender: FDA-Public Use
  Company Number: None

PATIENT
  Age: 64 Year
  Sex: Male
  Weight: 88.5 kg

DRUGS (2)
  1. AUSTEDO [Suspect]
     Active Substance: DEUTETRABENAZINE
     Indication: TARDIVE DYSKINESIA
     Route: 048
     Dates: start: 20210805
  2. AUSTEDO [Concomitant]
     Active Substance: DEUTETRABENAZINE
     Dates: start: 20210805, end: 20210809

REACTIONS (2)
  - Hypothermia [None]
  - Swollen tongue [None]

NARRATIVE: CASE EVENT DATE: 20210809
